FAERS Safety Report 20801500 (Version 5)
Quarter: 2023Q2

REPORT INFORMATION
  Report Type: Report from Study
  Country: KR (occurrence: None)
  Receive Date: 20220509
  Receipt Date: 20230526
  Transmission Date: 20230722
  Serious: Yes (Hospitalization)
  Sender: FDA-Public Use
  Company Number: KR-ROCHE-3090601

PATIENT
  Age: 51 Year
  Sex: Female
  Weight: 58 kg

DRUGS (8)
  1. ATEZOLIZUMAB [Suspect]
     Active Substance: ATEZOLIZUMAB
     Indication: Triple negative breast cancer
     Dosage: ON 02/MAR/2022, SHE RECEIVED THE LAST DOSE(1200 MG EVERY 3 WEEKS) PRIOR TO AE + SAE
     Route: 041
     Dates: start: 20210713
  2. PACLITAXEL [Suspect]
     Active Substance: PACLITAXEL
     Indication: Triple negative breast cancer
     Dosage: DATE OF MOST RECENT DOSE (159.2 MG) OF PACLITAXEL ADMINISTERED PRIOR TO ONSET ON SAE ON 28/SEP/2021
     Route: 042
     Dates: start: 20210713
  3. DOXORUBICIN [Suspect]
     Active Substance: DOXORUBICIN
     Indication: Triple negative breast cancer
     Dosage: DATE OF MOST RECENT DOSE (107.4 MG) OF DOXORUBICIN ADMINISTERED PRIOR TO ONSET OF SAE ON 07/DEC/202.
     Route: 042
     Dates: start: 20211005
  4. CYCLOPHOSPHAMIDE [Suspect]
     Active Substance: CYCLOPHOSPHAMIDE
     Indication: Triple negative breast cancer
     Dosage: DATE OF MOST RECENT DOSE (1074 MG) OF CYCLOPHOSPHAMIDE ADMINISTERED PRIOR TO ONSET OF SAE ON 07/DEC/
     Route: 042
     Dates: start: 20211005
  5. PEGFILGRASTIM [Suspect]
     Active Substance: PEGFILGRASTIM
     Indication: Triple negative breast cancer
     Dosage: CYCLE 4, VISIT 2. REASON FOR DELAYED DOSE ADVERSE EVENT?NO OF INJECTIONS 2
     Route: 058
     Dates: start: 20211102, end: 20211102
  6. PEGFILGRASTIM [Suspect]
     Active Substance: PEGFILGRASTIM
     Dosage: NO OF INJECTION 1?CYCLE 4 VISIT 1
     Route: 058
     Dates: start: 20211006, end: 20211006
  7. PEGFILGRASTIM [Suspect]
     Active Substance: PEGFILGRASTIM
     Dosage: NO OF INJECTION 3?CYCLE 5 VISIT 1
     Route: 058
     Dates: start: 20211124, end: 20211124
  8. PEGFILGRASTIM [Suspect]
     Active Substance: PEGFILGRASTIM
     Dosage: NO OF INJECTIONS: 5?CYCLE 5 VISIT 2
     Route: 058
     Dates: start: 20211209, end: 20211209

REACTIONS (1)
  - Myocarditis [Not Recovered/Not Resolved]

NARRATIVE: CASE EVENT DATE: 20220503
